FAERS Safety Report 17898886 (Version 2)
Quarter: 2020Q2

REPORT INFORMATION
  Report Type: Report from Study
  Country: KR (occurrence: KR)
  Receive Date: 20200616
  Receipt Date: 20200622
  Transmission Date: 20200714
  Serious: Yes (Death)
  Sender: FDA-Public Use
  Company Number: KR-REGENERON PHARMACEUTICALS, INC.-2020-43524

PATIENT

DRUGS (1)
  1. EYLEA [Suspect]
     Active Substance: AFLIBERCEPT
     Indication: AGE-RELATED MACULAR DEGENERATION
     Dosage: UNKNOWN DOSE, SITE, FREQUENCY AND TOTAL NUMBER OF INJECTIONS
     Dates: start: 20200224, end: 20200427

REACTIONS (1)
  - Death [Fatal]

NARRATIVE: CASE EVENT DATE: 20200529
